FAERS Safety Report 9288317 (Version 3)
Quarter: 2013Q4

REPORT INFORMATION
  Report Type: Spontaneous
  Country: IT (occurrence: None)
  Receive Date: 20130509
  Receipt Date: 20131029
  Transmission Date: 20140711
  Serious: Yes (Hospitalization)
  Sender: FDA-Public Use
  Company Number: AUR-APL-2013-03844

PATIENT
  Age: 67 Year
  Sex: Male

DRUGS (6)
  1. SERTRALINE(SERTRALINE) [Suspect]
     Indication: PRODUCT USED FOR UNKNOWN INDICATION
     Route: 048
     Dates: start: 20130402, end: 20130402
  2. SERENASE [Suspect]
     Indication: PRODUCT USED FOR UNKNOWN INDICATION
     Route: 048
     Dates: start: 20130402, end: 20130402
  3. DEPAKIN(VALPROATE SODIUM) [Concomitant]
  4. XANAX(ALPRAZOLAM) [Concomitant]
  5. ZOLPIDEM(ZOLPIDEM) [Concomitant]
  6. SERTRALINE [Concomitant]

REACTIONS (3)
  - Suicide attempt [None]
  - Drug abuse [None]
  - Toxicity to various agents [None]
